FAERS Safety Report 9094546 (Version 1)
Quarter: 2013Q1

REPORT INFORMATION
  Report Type: Spontaneous
  Country: AR (occurrence: AR)
  Receive Date: 20130219
  Receipt Date: 20130219
  Transmission Date: 20140127
  Serious: Yes (Death)
  Sender: FDA-Public Use
  Company Number: PHHY2012AR127499

PATIENT
  Sex: Female

DRUGS (1)
  1. EXELON PATCH [Suspect]
     Indication: DEMENTIA ALZHEIMER^S TYPE
     Dosage: 5 CM (4.6MG) A DAY
     Route: 062

REACTIONS (3)
  - Cerebrovascular accident [Fatal]
  - Cognitive disorder [Fatal]
  - Aphonia [Fatal]
